FAERS Safety Report 7987629-9 (Version None)
Quarter: 2011Q4

REPORT INFORMATION
  Report Type: 
  Country: None (occurrence: None)
  Receive Date: 20111216
  Receipt Date: 20110826
  Transmission Date: 20120403
  Serious: No
  Sender: FDA-Public Use
  Company Number: US-BRISTOL-MYERS SQUIBB COMPANY-15291925

PATIENT
  Age: 50 Year
  Sex: Female

DRUGS (4)
  1. LITHIUM CARBONATE [Concomitant]
  2. TRAZODONE HCL [Concomitant]
  3. LAMICTAL [Concomitant]
  4. ABILIFY [Suspect]
     Dosage: INITIALLY TAKEN 5MG INCREASED TO 10 MG THEN DECREASED TO 5MG ONE DAY 5MG NEXT DAY 2.5MG
     Dates: start: 20100701, end: 20100916

REACTIONS (3)
  - EXTRAPYRAMIDAL DISORDER [None]
  - INSOMNIA [None]
  - WRONG TECHNIQUE IN DRUG USAGE PROCESS [None]
